FAERS Safety Report 6269044-1 (Version None)
Quarter: 2009Q3

REPORT INFORMATION
  Report Type: 
  Country: None (occurrence: None)
  Receive Date: 20090715
  Receipt Date: 20090707
  Transmission Date: 20100115
  Serious: Yes (Hospitalization)
  Sender: FDA-Public Use
  Company Number: B0583005A

PATIENT
  Sex: Male

DRUGS (2)
  1. VALTREX [Suspect]
     Indication: HERPES ZOSTER
     Dosage: 1000MG THREE TIMES PER DAY
     Route: 048
     Dates: start: 20090704
  2. VALTREX [Suspect]
     Dosage: 500MG UNKNOWN
     Route: 048
     Dates: end: 20090707

REACTIONS (1)
  - ABNORMAL BEHAVIOUR [None]
